FAERS Safety Report 8560980-X (Version None)
Quarter: 2012Q3

REPORT INFORMATION
  Report Type: 
  Country: None (occurrence: None)
  Receive Date: 20120802
  Receipt Date: 20120725
  Transmission Date: 20120928
  Serious: Yes (Hospitalization)
  Sender: FDA-Public Use
  Company Number: ES-ELI_LILLY_AND_COMPANY-ES201205003390

PATIENT
  Sex: Male
  Weight: 59 kg

DRUGS (14)
  1. ASPIRIN [Concomitant]
     Indication: THROMBOSIS
     Dosage: 1 DF, QD
     Route: 048
  2. FORTEO [Suspect]
     Indication: OSTEOPOROSIS
     Dosage: 20 UG, QD
     Route: 058
     Dates: start: 20120410
  3. CALCIUM SANDOZ [Concomitant]
     Indication: OSTEOPOROSIS
     Dosage: 1 DF, QD
     Route: 048
  4. ACFOL [Concomitant]
     Dosage: 1 DF, QD
     Route: 048
  5. FORTEO [Suspect]
     Dosage: 20 UG, QD
     Route: 058
     Dates: start: 20120410
  6. NOLOTIL [Concomitant]
     Indication: BACK PAIN
     Dosage: 1 DF, QD
     Route: 048
  7. XALATAN [Concomitant]
     Indication: THROMBOSIS
     Dosage: 2 DF, QD
     Route: 047
  8. SINOGAN [Concomitant]
     Dosage: 1 DF, QD
     Route: 048
  9. OMEPRAZOLE [Concomitant]
     Dosage: 1 DF, QD
     Route: 048
  10. ENALAPRIL MALEATE [Concomitant]
     Indication: HYPERTENSION
     Dosage: 20 MG, QD
     Route: 048
  11. METFORMIN HYDROCHLORIDE [Concomitant]
     Indication: DIABETES MELLITUS
     Dosage: 3 DF, QD
     Route: 048
  12. CLORAZEPATE DIPOTASSIUM [Concomitant]
     Indication: BACK PAIN
     Dosage: 2 DF, QD
     Route: 048
  13. EMPORTAL [Concomitant]
     Dosage: 1 DF, QD
     Route: 048
  14. HIDROFEROL [Concomitant]
     Dosage: 2 DF, OTHER

REACTIONS (2)
  - CONSTIPATION [None]
  - HYPONATRAEMIA [None]
